FAERS Safety Report 4987417-1 (Version None)
Quarter: 2006Q2

REPORT INFORMATION
  Report Type: 
  Country: None (occurrence: None)
  Receive Date: 20060501
  Receipt Date: 20050913
  Transmission Date: 20061013
  Serious: Yes (Hospitalization)
  Sender: FDA-Public Use
  Company Number: US-MERCK-0509USA01720

PATIENT
  Age: 49 Year
  Sex: Male
  Weight: 86 kg

DRUGS (9)
  1. VIAGRA [Concomitant]
     Route: 065
  2. ZITHROMAX [Concomitant]
     Route: 065
  3. PLAVIX [Concomitant]
     Route: 048
  4. TOPROL-XL [Concomitant]
     Route: 048
  5. [THERAPY UNSPECIFIED] [Concomitant]
     Route: 065
  6. ASPIRIN [Concomitant]
     Route: 048
  7. PREDNISONE [Concomitant]
     Route: 048
  8. PREVACID [Concomitant]
     Route: 048
  9. VIOXX [Suspect]
     Indication: ARTHRITIS
     Route: 048
     Dates: start: 20040101, end: 20040824

REACTIONS (5)
  - CARDIAC DISORDER [None]
  - CHEST PAIN [None]
  - DEPRESSION [None]
  - ODYNOPHAGIA [None]
  - PAIN [None]
